FAERS Safety Report 8227431-6 (Version None)
Quarter: 2012Q1

REPORT INFORMATION
  Report Type: 
  Country: None (occurrence: None)
  Receive Date: 20120322
  Receipt Date: 20120314
  Transmission Date: 20120608
  Serious: Yes (Other)
  Sender: FDA-Public Use
  Company Number: US-BAYER-2012-011462

PATIENT
  Age: 22 Year
  Sex: Female
  Weight: 68.481 kg

DRUGS (4)
  1. YASMIN [Suspect]
     Dosage: UNK
     Route: 048
     Dates: start: 20070901, end: 20100401
  2. ONDANSETRON [Concomitant]
     Dosage: 4 MG, UNK
     Route: 048
  3. YAZ [Suspect]
     Dosage: UNK
     Route: 048
     Dates: start: 20070901, end: 20100401
  4. LANSOPRAZOLE [Concomitant]
     Dosage: 30 MG, UNK
     Route: 048

REACTIONS (7)
  - GALLBLADDER INJURY [None]
  - PAIN [None]
  - ANXIETY [None]
  - GENERAL PHYSICAL HEALTH DETERIORATION [None]
  - CHOLECYSTITIS [None]
  - INJURY [None]
  - EMOTIONAL DISTRESS [None]
